FAERS Safety Report 13594499 (Version 1)
Quarter: 2017Q2

REPORT INFORMATION
  Report Type: Spontaneous
  Country: NL (occurrence: NL)
  Receive Date: 20170530
  Receipt Date: 20170530
  Transmission Date: 20170830
  Serious: Yes (Other)
  Sender: FDA-Public Use
  Company Number: NL-ELI_LILLY_AND_COMPANY-NL201705007741

PATIENT
  Age: 28 Year
  Sex: Male

DRUGS (2)
  1. ZYPADHERA [Suspect]
     Active Substance: OLANZAPINE PAMOATE
     Indication: BIPOLAR DISORDER
     Dosage: 405 MG, WEEKLY (1/W)
     Route: 030
     Dates: start: 201605
  2. LORAZEPAM. [Concomitant]
     Active Substance: LORAZEPAM
     Dosage: 2.5 MG, UNK

REACTIONS (9)
  - Somnolence [Unknown]
  - Confusional state [Unknown]
  - Fatigue [Unknown]
  - Dizziness [Unknown]
  - Sedation [Unknown]
  - Body temperature increased [Unknown]
  - Presyncope [Unknown]
  - Sleep disorder [Unknown]
  - Agitation [Recovering/Resolving]

NARRATIVE: CASE EVENT DATE: 20170518
